FAERS Safety Report 11247500 (Version 1)
Quarter: 2015Q3

REPORT INFORMATION
  Report Type: Other
  Country: GB (occurrence: GB)
  Receive Date: 20150708
  Receipt Date: 20150708
  Transmission Date: 20151125
  Serious: Yes (Death, Hospitalization, Other)
  Sender: FDA-Public Use
  Company Number: GB-MYLANLABS-2015M1021572

PATIENT

DRUGS (2)
  1. BISOPROLOL [Suspect]
     Active Substance: BISOPROLOL
     Indication: CARDIAC MURMUR
     Dosage: 10 MG, UNK
     Dates: start: 2010
  2. BISOPROLOL [Suspect]
     Active Substance: BISOPROLOL
     Dosage: 2.5 MG, UNK
     Dates: start: 2010

REACTIONS (9)
  - Dizziness [Unknown]
  - Liver abscess [Fatal]
  - Pneumonia [Fatal]
  - Hand fracture [Unknown]
  - Overdose [Unknown]
  - Atrial fibrillation [Fatal]
  - Sepsis [Fatal]
  - Metastatic neoplasm [Fatal]
  - Fall [Unknown]
